FAERS Safety Report 24529881 (Version 1)
Quarter: 2024Q4

REPORT INFORMATION
  Report Type: Spontaneous
  Country: US (occurrence: US)
  Receive Date: 20241021
  Receipt Date: 20241021
  Transmission Date: 20250114
  Serious: No
  Sender: FRESENIUS KABI
  Company Number: US-FreseniusKabi-FK202415307

PATIENT
  Age: 35 Year
  Sex: Male

DRUGS (2)
  1. MORPHINE [Suspect]
     Active Substance: MORPHINE
     Indication: Pain
     Route: 037
  2. PRIALT [Suspect]
     Active Substance: ZICONOTIDE ACETATE
     Indication: Pain
     Dosage: FORM OF ADMINISTRATION: INFUSION? 100 ?G/ML
     Route: 037

REACTIONS (3)
  - Off label use [Unknown]
  - Pain [Unknown]
  - Motor dysfunction [Unknown]
